FAERS Safety Report 18157533 (Version 6)
Quarter: 2020Q3

REPORT INFORMATION
  Report Type: Spontaneous
  Country: FR (occurrence: FR)
  Receive Date: 20200817
  Receipt Date: 20200925
  Transmission Date: 20201103
  Serious: Yes (Life-Threatening, Hospitalization, Other)
  Sender: FDA-Public Use
  Company Number: FR-PFIZER INC-2020314052

PATIENT
  Age: 62 Year
  Sex: Male

DRUGS (25)
  1. BISOPROLOL [Interacting]
     Active Substance: BISOPROLOL
     Indication: HYPERTENSION
     Dosage: UNK
     Route: 065
  2. NOREPINEPHRINE. [Interacting]
     Active Substance: NOREPINEPHRINE
     Indication: ANAPHYLACTIC SHOCK
     Dosage: UNK
     Route: 065
  3. ATROPINE. [Concomitant]
     Active Substance: ATROPINE
     Indication: ANAPHYLACTIC SHOCK
     Dosage: UNK
     Route: 065
  4. AMIODARONE [Concomitant]
     Active Substance: AMIODARONE
     Indication: ANAPHYLACTIC SHOCK
     Dosage: 300 MG (300 MILLIGRAM)
     Route: 065
  5. DOBUTAMINE [Concomitant]
     Active Substance: DOBUTAMINE HYDROCHLORIDE
     Indication: RESUSCITATION
  6. BISOPROLOL [Concomitant]
     Active Substance: BISOPROLOL
     Indication: HYPERTENSION
     Route: 065
  7. ATROPINE. [Concomitant]
     Active Substance: ATROPINE
     Indication: RESUSCITATION
  8. CALCIUM [Concomitant]
     Active Substance: CALCIUM
     Indication: RESUSCITATION
  9. CHLORHEXIDINE [Suspect]
     Active Substance: CHLORHEXIDINE
     Indication: STERILISATION
  10. DESFLURANE. [Concomitant]
     Active Substance: DESFLURANE
     Indication: MAINTENANCE OF ANAESTHESIA
     Dosage: UNK
     Route: 065
  11. MAGNESIUM [Concomitant]
     Active Substance: MAGNESIUM
     Indication: ANAPHYLACTIC SHOCK
     Dosage: 1000 MG (1000 MILLIGRAM)
     Route: 065
  12. BISOPROLOL [Concomitant]
     Active Substance: BISOPROLOL
     Indication: HYPERTENSION
  13. CHLORHEXIDINE [Suspect]
     Active Substance: CHLORHEXIDINE
     Indication: ANTI-INFECTIVE THERAPY
     Dosage: A JUGULAR CENTRAL VENOUS ROUTE PLACED IN THE SUBCLAVIAN PERFORMED ON A FIELD
     Route: 065
  14. CISATRACURIUM BESILATE [Concomitant]
     Active Substance: CISATRACURIUM BESYLATE
     Indication: INDUCTION OF ANAESTHESIA
     Dosage: 14 MG
     Route: 065
  15. MAGNESIUM [Concomitant]
     Active Substance: MAGNESIUM
     Indication: RESUSCITATION
  16. CALCIUM [Concomitant]
     Active Substance: CALCIUM
     Indication: ANAPHYLACTIC SHOCK
     Dosage: UNK
  17. ADRENALINE [Suspect]
     Active Substance: EPINEPHRINE
     Indication: ANAPHYLACTIC SHOCK
     Dosage: UNK
     Route: 065
  18. PROPOFOL. [Concomitant]
     Active Substance: PROPOFOL
     Indication: INDUCTION OF ANAESTHESIA
     Dosage: 300 MG
     Route: 065
  19. DOBUTAMINE [Concomitant]
     Active Substance: DOBUTAMINE HYDROCHLORIDE
     Indication: ANAPHYLACTIC SHOCK
     Dosage: UNK
     Route: 065
  20. RINGER LACTATE [SODIUM LACTATE] [Concomitant]
     Active Substance: SODIUM LACTATE
     Indication: VEHICLE SOLUTION USE
     Dosage: UNK (CEFOXITIN WAS INFUSED WITH RINGER^S LACTATE)
  21. AMIODARONE [Concomitant]
     Active Substance: AMIODARONE
     Indication: RESUSCITATION
  22. CEFOXITIN SODIUM [Concomitant]
     Active Substance: CEFOXITIN SODIUM
     Indication: ANAESTHESIA
  23. BISACODYL. [Concomitant]
     Active Substance: BISACODYL
     Indication: BOWEL PREPARATION
     Dosage: UNK
     Route: 048
  24. SUFENTANIL [Concomitant]
     Active Substance: SUFENTANIL
     Indication: INDUCTION OF ANAESTHESIA
     Dosage: 20 UG (20 MICROGRAM)
     Route: 065
  25. CEFOXITIN SODIUM [Concomitant]
     Active Substance: CEFOXITIN SODIUM
     Indication: ANTIBIOTIC PROPHYLAXIS
     Dosage: 2 G (2 G, INFUSED WITH RINGER^S LACTATE)
     Route: 065

REACTIONS (5)
  - Drug interaction [Unknown]
  - Therapeutic product effect decreased [Unknown]
  - Anaphylactic shock [Recovered/Resolved]
  - Drug hypersensitivity [Recovered/Resolved]
  - Documented hypersensitivity to administered product [Unknown]
